FAERS Safety Report 7439486-7 (Version None)
Quarter: 2011Q2

REPORT INFORMATION
  Report Type: 
  Country: None (occurrence: None)
  Receive Date: 20110427
  Receipt Date: 20110412
  Transmission Date: 20111010
  Serious: Yes (Life-Threatening, Other)
  Sender: FDA-Public Use
  Company Number: JP-AMGEN LTD.-JPNCT2010000405

PATIENT
  Age: 64 Year
  Sex: Male
  Weight: 75 kg

DRUGS (14)
  1. LOCOID [Concomitant]
     Dosage: UNK
     Route: 062
  2. FLUOROURACIL [Suspect]
     Indication: COLORECTAL CANCER
     Dosage: 400 MG/M2, Q2WK
     Route: 040
     Dates: start: 20100628, end: 20101209
  3. MYSER [Concomitant]
     Dosage: UNK
     Route: 062
  4. PANITUMUMAB [Suspect]
     Dosage: 4.8 MG/KG, Q2WK
     Route: 041
     Dates: start: 20100902, end: 20100916
  5. FLUOROURACIL [Suspect]
     Route: 041
     Dates: start: 20100628, end: 20101209
  6. PANITUMUMAB [Suspect]
     Indication: COLORECTAL CANCER
     Dosage: 6 MG/KG, Q2WK
     Route: 041
     Dates: start: 20100628, end: 20100712
  7. BIO THREE [Concomitant]
     Dosage: UNK
     Route: 048
  8. LOPEMIN [Concomitant]
     Dosage: UNK
     Route: 048
  9. IRINOTECAN HCL [Suspect]
     Indication: COLORECTAL CANCER
     Dosage: 150 MG/M2, Q2WK
     Route: 041
     Dates: start: 20100628, end: 20101209
  10. CALCIUM LEVOFOLINATE [Suspect]
     Indication: COLORECTAL CANCER
     Dosage: 100 MG/M2, Q2WK
     Route: 041
     Dates: start: 20100628, end: 20101209
  11. KENALOG [Concomitant]
     Dosage: UNK
     Route: 048
  12. PANITUMUMAB [Suspect]
     Dosage: 4.2 MG/KG, Q2WK
     Route: 041
     Dates: start: 20101007, end: 20101209
  13. MIYA-BM [Concomitant]
     Dosage: UNK
     Route: 048
  14. GRAN [Concomitant]
     Dosage: UNK
     Route: 042

REACTIONS (4)
  - STOMATITIS [None]
  - DERMATITIS ACNEIFORM [None]
  - NEUTROPHIL COUNT DECREASED [None]
  - FEBRILE NEUTROPENIA [None]
